FAERS Safety Report 4884269-5 (Version None)
Quarter: 2005Q4

REPORT INFORMATION
  Report Type: 
  Country: None (occurrence: None)
  Receive Date: 20051201
  Receipt Date: 20050829
  Transmission Date: 20060501
  Serious: No
  Sender: FDA-Public Use
  Company Number: 2005PV001697

PATIENT
  Age: 62 Year
  Sex: Male

DRUGS (10)
  1. BYETTA [Suspect]
     Indication: DIABETES MELLITUS NON-INSULIN-DEPENDENT
     Dosage: 5 MCG;BID;SC
     Route: 058
     Dates: start: 20050801, end: 20050801
  2. DYAZIDE [Concomitant]
  3. FOLTX [Concomitant]
  4. NORVASC [Concomitant]
  5. MULTIVITAMIN [Concomitant]
  6. PRAVACHOL [Concomitant]
  7. ATENOLOL [Concomitant]
  8. LANTUS [Concomitant]
  9. QUINAPRIL [Concomitant]
  10. DIGITEK [Concomitant]

REACTIONS (3)
  - CHEST DISCOMFORT [None]
  - FEELING HOT [None]
  - URTICARIA [None]
